FAERS Safety Report 9286662 (Version 1)
Quarter: 2013Q2

REPORT INFORMATION
  Report Type: Report from Study
  Country: US (occurrence: US)
  Receive Date: 20130513
  Receipt Date: 20130513
  Transmission Date: 20140414
  Serious: Yes (Hospitalization, Other)
  Sender: FDA-Public Use
  Company Number: PHEH2013US010273

PATIENT
  Age: 78 Year
  Sex: Female

DRUGS (1)
  1. EXELON PATCH [Suspect]
     Indication: DEMENTIA ALZHEIMER^S TYPE
     Dosage: 9.5 MG, DAILY
     Route: 062
     Dates: start: 20121101

REACTIONS (5)
  - Joint dislocation [Recovering/Resolving]
  - Upper limb fracture [Recovering/Resolving]
  - Fall [Recovering/Resolving]
  - Fear [Recovering/Resolving]
  - Memory impairment [Recovering/Resolving]
